FAERS Safety Report 9316377 (Version 1)
Quarter: 2013Q2

REPORT INFORMATION
  Report Type: Spontaneous
  Country: US (occurrence: None)
  Receive Date: 20130522
  Receipt Date: 20130522
  Transmission Date: 20140414
  Serious: Yes (Hospitalization, Disabling)
  Sender: FDA-Public Use
  Company Number: 2013050046

PATIENT
  Age: 64 Year
  Sex: Female
  Weight: 96.16 kg

DRUGS (3)
  1. ASTEPRO [Suspect]
     Indication: HYPERSENSITIVITY
     Dosage: 822 MCG (411 MCG, 2 IN 1 D, IN
     Dates: start: 2008, end: 20120410
  2. SIMVASTATIN (SIMVASTATIN) [Concomitant]
  3. ANTI INFLAMMATORY (ANTI-INFLAMMATORY) [Concomitant]

REACTIONS (2)
  - Arthritis [None]
  - Memory impairment [None]
